FAERS Safety Report 5376355-0 (Version None)
Quarter: 2007Q3

REPORT INFORMATION
  Report Type: 
  Country: None (occurrence: None)
  Receive Date: 20070702
  Receipt Date: 20070620
  Transmission Date: 20080115
  Serious: Yes (Disabling, Other)
  Sender: FDA-Public Use
  Company Number: FR-GILEAD-2007-0012518

PATIENT
  Age: 44 Year
  Sex: Male
  Weight: 66 kg

DRUGS (4)
  1. TRUVADA [Suspect]
     Indication: HIV INFECTION
     Route: 048
     Dates: start: 20061108, end: 20070402
  2. VIREAD [Suspect]
     Indication: HIV INFECTION
     Route: 048
     Dates: start: 20021018, end: 20061108
  3. NORVIR [Concomitant]
     Indication: HIV INFECTION
     Route: 048
  4. GLUCOVANCE [Concomitant]

REACTIONS (4)
  - HYPOPHOSPHATAEMIA [None]
  - OSTEOMALACIA [None]
  - OSTEONECROSIS [None]
  - RENAL FAILURE ACUTE [None]
